FAERS Safety Report 8492499-9 (Version None)
Quarter: 2012Q3

REPORT INFORMATION
  Report Type: 
  Country: None (occurrence: None)
  Receive Date: 20120706
  Receipt Date: 20120703
  Transmission Date: 20120928
  Serious: No
  Sender: FDA-Public Use
  Company Number: US-PFIZER INC-2012113615

PATIENT
  Sex: Male
  Weight: 98 kg

DRUGS (8)
  1. SUTENT [Suspect]
     Indication: RENAL CELL CARCINOMA
     Dosage: 50 MG, 1X/DAY
     Route: 048
     Dates: start: 20120301
  2. SIMVASTATIN [Concomitant]
     Indication: BLOOD CHOLESTEROL INCREASED
     Dosage: 40 MG, UNK
  3. ASPIRIN [Concomitant]
     Dosage: 81 MG, UNK
  4. VERAPAMIL [Concomitant]
     Dosage: 120 MG, UNK
  5. VERAPAMIL [Concomitant]
     Indication: HYPERTENSION
     Dosage: 100 MG, UNK
  6. FLOMAX [Concomitant]
     Indication: PROSTATIC DISORDER
     Dosage: 0.4 MG, UNK
  7. LOSARTAN [Concomitant]
     Indication: HYPERTENSION
     Dosage: 50 MG, UNK
  8. SUTENT [Suspect]
     Dosage: 50 MG, DAILY, 4 WEEKS ON AND THEN 2 WEEKS OFF
     Route: 048
     Dates: start: 20120424

REACTIONS (5)
  - PAIN IN EXTREMITY [None]
  - SKIN DISORDER [None]
  - HYPERKERATOSIS [None]
  - SKIN ULCER [None]
  - HYPERTENSION [None]
